FAERS Safety Report 9720581 (Version 1)
Quarter: 2013Q4

REPORT INFORMATION
  Report Type: Report from Study
  Country: SE (occurrence: SE)
  Receive Date: 20131129
  Receipt Date: 20131129
  Transmission Date: 20140711
  Serious: Yes (Death, Hospitalization)
  Sender: FDA-Public Use
  Company Number: SE-CELGENEUS-150-21880-13112728

PATIENT
  Age: 85 Year
  Sex: Male
  Weight: 67.4 kg

DRUGS (11)
  1. REVLIMID [Suspect]
     Indication: CHRONIC LYMPHOCYTIC LEUKAEMIA
     Dosage: 5 MILLIGRAM
     Route: 048
     Dates: start: 20131112, end: 20131114
  2. ACID ACETYLSALICYLIC [Concomitant]
     Indication: THROMBOSIS PROPHYLAXIS
     Dosage: 160 MILLIGRAM
     Route: 065
     Dates: start: 20131112
  3. DALTEPARIN NATRIUM [Concomitant]
     Indication: PRODUCT USED FOR UNKNOWN INDICATION
     Dosage: 5000 IU (INTERNATIONAL UNIT)
     Route: 058
     Dates: start: 20131113, end: 20131113
  4. PEGFILGRASTIM [Concomitant]
     Indication: NEUTROPHIL COUNT DECREASED
     Dosage: 6 MILLIGRAM
     Route: 058
     Dates: start: 20131113, end: 20131113
  5. PREDNISOLON [Concomitant]
     Indication: CHRONIC LYMPHOCYTIC LEUKAEMIA
     Dosage: 10 MILLIGRAM
     Route: 065
     Dates: start: 20131112
  6. SULFMETROXAZOL TRIMETROPRIM [Concomitant]
     Indication: PNEUMOCYSTIS JIROVECII PNEUMONIA
     Dosage: 800MG/160MG
     Route: 065
     Dates: start: 20131113
  7. METOPROLOL [Concomitant]
     Indication: HYPERTONIA
     Dosage: 2.5 MILLIGRAM
     Route: 065
     Dates: start: 20121218
  8. FELODIPIN [Concomitant]
     Indication: HYPERTONIA
     Dosage: 2.5 MILLIGRAM
     Route: 065
     Dates: start: 20091218
  9. LEVOTYROXIN [Concomitant]
     Indication: HYPOTHYROIDISM
     Dosage: 125
     Route: 065
     Dates: start: 2011
  10. ALLOPURINOL [Concomitant]
     Indication: PROPHYLAXIS
     Dosage: 300 MILLIGRAM
     Route: 065
     Dates: start: 20131108
  11. IMMUNOGLOBULIN [Concomitant]
     Indication: PRODUCT USED FOR UNKNOWN INDICATION
     Route: 041
     Dates: start: 20131111

REACTIONS (1)
  - Tumour flare [Fatal]
